APPROVED DRUG PRODUCT: REZENOPY
Active Ingredient: NALOXONE HYDROCHLORIDE
Strength: 10MG/SPRAY
Dosage Form/Route: SPRAY;NASAL
Application: N215487 | Product #001
Applicant: SCIENTURE LLC
Approved: Apr 19, 2024 | RLD: Yes | RS: Yes | Type: RX

PATENTS:
Patent 12514854 | Expires: Feb 5, 2041

EXCLUSIVITY:
Code: NP | Date: Apr 19, 2027